FAERS Safety Report 4429893-9 (Version None)
Quarter: 2004Q3

REPORT INFORMATION
  Report Type: 
  Country: None (occurrence: None)
  Receive Date: 20040817
  Receipt Date: 20040804
  Transmission Date: 20050211
  Serious: Yes (Death)
  Sender: FDA-Public Use
  Company Number: 208300

PATIENT
  Sex: Female

DRUGS (1)
  1. AVASTIN [Suspect]
     Indication: SMALL INTESTINE CARCINOMA
     Dosage: INTRAVENOUS
     Route: 042
     Dates: start: 20040601

REACTIONS (3)
  - EPISTAXIS [None]
  - MOUTH HAEMORRHAGE [None]
  - VICTIM OF HOMICIDE [None]
